FAERS Safety Report 17047039 (Version 11)
Quarter: 2020Q2

REPORT INFORMATION
  Report Type: Report from Study
  Country: US (occurrence: US)
  Receive Date: 20191119
  Receipt Date: 20200619
  Transmission Date: 20200713
  Serious: No
  Sender: FDA-Public Use
  Company Number: NVSC2019US037577

PATIENT
  Sex: Male
  Weight: 95.69 kg

DRUGS (10)
  1. TREPROSTINIL. [Suspect]
     Active Substance: TREPROSTINIL
     Dosage: 30 NG/KG/MIN, CONTINUOUS
     Route: 042
  2. TREPROSTINIL. [Suspect]
     Active Substance: TREPROSTINIL
     Dosage: (28NG/KG/MIN)UNK
     Route: 042
     Dates: start: 20190907
  3. VELETRI [Concomitant]
     Active Substance: EPOPROSTENOL
     Indication: PRODUCT USED FOR UNKNOWN INDICATION
     Dosage: UNK
     Route: 065
  4. TREPROSTINIL. [Suspect]
     Active Substance: TREPROSTINIL
     Indication: PULMONARY ARTERIAL HYPERTENSION
     Dosage: 24 NG/KG/MIN, CONTINUOUS
     Route: 042
     Dates: start: 20190709
  5. ADEMPAS [Concomitant]
     Active Substance: RIOCIGUAT
     Indication: PRODUCT USED FOR UNKNOWN INDICATION
     Dosage: UNK
     Route: 065
  6. TREPROSTINIL. [Suspect]
     Active Substance: TREPROSTINIL
     Dosage: 28 NG/KG/MIN, CONTINUOUS
     Route: 042
  7. TREPROSTINIL. [Suspect]
     Active Substance: TREPROSTINIL
     Dosage: UNK
     Route: 065
  8. TREPROSTINIL. [Suspect]
     Active Substance: TREPROSTINIL
     Dosage: UNK
     Route: 065
  9. TREPROSTINIL. [Suspect]
     Active Substance: TREPROSTINIL
     Dosage: 30 NG (CONTINOUS)
     Route: 042
  10. ELIQUIS [Concomitant]
     Active Substance: APIXABAN
     Indication: PRODUCT USED FOR UNKNOWN INDICATION
     Dosage: UNK
     Route: 065

REACTIONS (14)
  - Ageusia [Unknown]
  - Gait disturbance [Unknown]
  - Bursitis [Unknown]
  - Weight decreased [Unknown]
  - Flushing [Unknown]
  - Catheter site rash [Unknown]
  - Diarrhoea [Unknown]
  - Decreased appetite [Unknown]
  - Arthralgia [Not Recovered/Not Resolved]
  - Complication associated with device [Unknown]
  - Myalgia [Not Recovered/Not Resolved]
  - Catheter site pruritus [Unknown]
  - Post procedural complication [Unknown]
  - Pain [Unknown]
